FAERS Safety Report 22989050 (Version 2)
Quarter: 2023Q4

REPORT INFORMATION
  Report Type: Spontaneous
  Country: US (occurrence: US)
  Receive Date: 20230927
  Receipt Date: 20231208
  Transmission Date: 20240110
  Serious: Yes (Other)
  Sender: FDA-Public Use
  Company Number: US-JNJFOC-20230941319

PATIENT
  Sex: Female

DRUGS (1)
  1. REMICADE [Suspect]
     Active Substance: INFLIXIMAB
     Indication: Product used for unknown indication
     Route: 041

REACTIONS (5)
  - Gastrointestinal haemorrhage [Unknown]
  - Exposure during pregnancy [Unknown]
  - Infusion related reaction [Unknown]
  - Arthralgia [Unknown]
  - Product physical issue [Unknown]

NARRATIVE: CASE EVENT DATE: 20040101
